FAERS Safety Report 25962911 (Version 1)
Quarter: 2025Q4

REPORT INFORMATION
  Report Type: Other
  Country: CA (occurrence: CA)
  Receive Date: 20251027
  Receipt Date: 20251027
  Transmission Date: 20260118
  Serious: Yes (Other)
  Sender: PFIZER
  Company Number: CA-PFIZER INC-202500210401

PATIENT
  Age: 35 Year
  Sex: Male

DRUGS (1)
  1. INFLIXIMAB [Suspect]
     Active Substance: INFLIXIMAB
     Indication: Crohn^s disease
     Dosage: 1 EVERY 4 WEEKS

REACTIONS (4)
  - COVID-19 [Unknown]
  - Dilated cardiomyopathy [Unknown]
  - Myocarditis [Unknown]
  - Off label use [Unknown]
